FAERS Safety Report 8991030 (Version 1)
Quarter: 2012Q4

REPORT INFORMATION
  Report Type: Spontaneous
  Country: US (occurrence: None)
  Receive Date: 20121221
  Receipt Date: 20121221
  Transmission Date: 20130627
  Serious: Yes (Hospitalization)
  Sender: FDA-Public Use
  Company Number: AUR-APL-2012-05449

PATIENT
  Age: 49 Year
  Sex: Female

DRUGS (3)
  1. LISINOPRIL (LISINOPRIL) [Suspect]
     Indication: HYPERTENSION
  2. LEVETIRACETAM (LEVETIRACETAM) [Concomitant]
  3. NITRAZEPAM (NITRAZEPAM) [Concomitant]

REACTIONS (9)
  - Abdominal rebound tenderness [None]
  - Gastrointestinal oedema [None]
  - Ascites [None]
  - Acute abdomen [None]
  - Intestinal ischaemia [None]
  - Angioedema [None]
  - Gamma-glutamyltransferase increased [None]
  - Blood lactate dehydrogenase increased [None]
  - Blood creatine phosphokinase increased [None]
